FAERS Safety Report 21399138 (Version 1)
Quarter: 2022Q4

REPORT INFORMATION
  Report Type: Report from Study
  Country: US (occurrence: US)
  Receive Date: 20221001
  Receipt Date: 20221001
  Transmission Date: 20230112
  Serious: No
  Sender: FDA-Public Use
  Company Number: US-ABBVIE-4134468

PATIENT
  Sex: Male

DRUGS (5)
  1. SKYRIZI [Suspect]
     Active Substance: RISANKIZUMAB-RZAA
     Indication: Product used for unknown indication
     Route: 058
     Dates: start: 2022, end: 2022
  2. SKYRIZI [Suspect]
     Active Substance: RISANKIZUMAB-RZAA
     Dosage: INCREASED DOSAGE
     Route: 058
     Dates: start: 2022
  3. MODERNA COVID-19 VACCINE [Suspect]
     Active Substance: ELASOMERAN
     Indication: COVID-19 immunisation
     Dosage: 1ST DOSE, ONCE
     Route: 030
     Dates: start: 202104, end: 202104
  4. MODERNA COVID-19 VACCINE [Suspect]
     Active Substance: ELASOMERAN
     Indication: COVID-19 immunisation
     Dosage: 2ND DOSE, ONCE
     Route: 058
     Dates: start: 202105, end: 202105
  5. MODERNA COVID-19 VACCINE [Suspect]
     Active Substance: ELASOMERAN
     Indication: COVID-19 immunisation
     Dosage: BOOSTER DOSE, ONCE
     Route: 030
     Dates: start: 202110, end: 202110

REACTIONS (4)
  - General symptom [Unknown]
  - Drug effect less than expected [Unknown]
  - Fatigue [Unknown]
  - Pain in extremity [Unknown]

NARRATIVE: CASE EVENT DATE: 20220101
